FAERS Safety Report 8734494 (Version 2)
Quarter: 2012Q4

REPORT INFORMATION
  Report Type: 
  Country: US (occurrence: US)
  Receive Date: 20120821
  Receipt Date: 20121005
  Transmission Date: 20130627
  Serious: No
  Sender: FDA-Public Use
  Company Number: US-ASTRAZENECA-2012SE56217

PATIENT
  Sex: Female

DRUGS (2)
  1. SYMBICORT PMDI [Suspect]
     Dosage: 320 MG BID
     Route: 055
     Dates: start: 20120529
  2. SYMBICORT PMDI [Suspect]
     Dosage: 160 MCG/4.5 MCG, UNKNOWN FREQUENCY
     Route: 055

REACTIONS (2)
  - Mouth ulceration [Recovering/Resolving]
  - Intentional drug misuse [Unknown]
